FAERS Safety Report 6975774-6 (Version None)
Quarter: 2010Q3

REPORT INFORMATION
  Report Type: 
  Country: None (occurrence: None)
  Receive Date: 20100910
  Receipt Date: 20100901
  Transmission Date: 20110219
  Serious: No
  Sender: FDA-Public Use
  Company Number: US-ROXANE LABORATORIES, INC.-2010-RO-01202RO

PATIENT
  Sex: Female

DRUGS (3)
  1. PREDNISONE [Suspect]
     Indication: DERMATITIS ALLERGIC
     Route: 048
  2. BETAMETHASONE DIPROPIONATE [Suspect]
     Indication: DERMATITIS ALLERGIC
     Route: 061
  3. DAPSONE [Concomitant]
     Indication: DERMATITIS ALLERGIC
     Route: 030
     Dates: start: 20100831, end: 20100831

REACTIONS (5)
  - ERYTHEMA [None]
  - FEELING HOT [None]
  - FEELING JITTERY [None]
  - FLUSHING [None]
  - PRURITUS [None]
